FAERS Safety Report 10216869 (Version 1)
Quarter: 2014Q2

REPORT INFORMATION
  Report Type: Spontaneous
  Country: US (occurrence: US)
  Receive Date: 20140604
  Receipt Date: 20140604
  Transmission Date: 20141212
  Serious: Yes (Other)
  Sender: FDA-Public Use
  Company Number: US-FRI-1000067870

PATIENT
  Age: 18 Year
  Sex: Female

DRUGS (5)
  1. SAPHRIS [Suspect]
     Indication: AFFECTIVE DISORDER
     Dosage: 10 MG
     Route: 060
     Dates: end: 20140602
  2. TRAZODONE [Concomitant]
  3. LAMICTAL [Concomitant]
  4. EFFEXOR [Concomitant]
  5. KLONOPIN [Concomitant]

REACTIONS (2)
  - Pancytopenia [Unknown]
  - Off label use [Recovered/Resolved]
